FAERS Safety Report 7948985-0 (Version None)
Quarter: 2011Q4

REPORT INFORMATION
  Report Type: 
  Country: None (occurrence: None)
  Receive Date: 20111130
  Receipt Date: 20111125
  Transmission Date: 20120403
  Serious: Yes (Hospitalization)
  Sender: FDA-Public Use
  Company Number: FR-PFIZER INC-2011287992

PATIENT
  Age: 56 Year
  Sex: Male

DRUGS (9)
  1. ASPIRIN [Concomitant]
  2. ATORVASTATIN CALCIUM [Suspect]
     Dosage: 40 MG, 1X/DAY
     Route: 048
  3. DIAMICRON [Concomitant]
  4. CIALIS [Suspect]
     Dosage: UNK
     Route: 048
     Dates: start: 20110701
  5. ONGLYZA [Suspect]
     Dosage: 5 MG, 1X/DAY
     Route: 048
  6. OMEPRAZOLE [Concomitant]
  7. LISINOPRIL [Suspect]
     Dosage: 5 MG, 1X/DAY
     Route: 048
  8. GLUCOPHAGE [Concomitant]
  9. ACETAMINOPHEN AND TRAMADOL HCL [Suspect]
     Dosage: 100 MG, 2X/DAY
     Route: 048

REACTIONS (1)
  - PANCREATITIS ACUTE [None]
